FAERS Safety Report 8014624-6 (Version None)
Quarter: 2011Q4

REPORT INFORMATION
  Report Type: 
  Country: None (occurrence: None)
  Receive Date: 20111229
  Receipt Date: 20111222
  Transmission Date: 20120403
  Serious: No
  Sender: FDA-Public Use
  Company Number: US-B.I. PHARMACEUTICALS,INC./RIDGEFIELD-2011-BP-25657BP

PATIENT
  Age: 69 Year
  Sex: Male
  Weight: 90.72 kg

DRUGS (6)
  1. CRESTOR [Concomitant]
     Dosage: 10 MG
  2. NEXIUM [Concomitant]
     Dosage: 40 MG
  3. PRADAXA [Suspect]
     Indication: ATRIAL FIBRILLATION
     Dosage: 300 MG
     Route: 048
     Dates: start: 20110414, end: 20110715
  4. HYDROCHLOROTHIAZIDE [Concomitant]
     Dosage: 12.5 MG
  5. TOPROL-XL [Concomitant]
     Dosage: 25 MG
  6. PRADAXA [Suspect]
     Dates: start: 20110913, end: 20111025

REACTIONS (2)
  - FEELING JITTERY [None]
  - IRRITABILITY [None]
